FAERS Safety Report 5886897-7 (Version None)
Quarter: 2008Q3

REPORT INFORMATION
  Report Type: 
  Country: None (occurrence: None)
  Receive Date: 20080917
  Receipt Date: 20080910
  Transmission Date: 20090109
  Serious: Yes (Hospitalization)
  Sender: FDA-Public Use
  Company Number: US-AMGEN-QUU273602

PATIENT
  Sex: Female

DRUGS (2)
  1. ENBREL [Suspect]
     Indication: RHEUMATOID ARTHRITIS
     Route: 058
     Dates: start: 20040901
  2. ENBREL [Suspect]
     Indication: PSORIASIS

REACTIONS (4)
  - KNEE ARTHROPLASTY [None]
  - MUSCULAR WEAKNESS [None]
  - PSORIASIS [None]
  - TUBERCULIN TEST POSITIVE [None]
